FAERS Safety Report 9054251 (Version 4)
Quarter: 2014Q2

REPORT INFORMATION
  Report Type: Spontaneous
  Country: US (occurrence: US)
  Receive Date: 20130208
  Receipt Date: 20140630
  Transmission Date: 20141212
  Serious: Yes (Hospitalization)
  Sender: FDA-Public Use
  Company Number: US-GLAXOSMITHKLINE-A1011273A

PATIENT
  Age: 56 Year
  Sex: Female

DRUGS (15)
  1. LOVAZA [Suspect]
     Indication: BLOOD CHOLESTEROL INCREASED
     Dosage: 1G TWICE PER DAY
     Route: 048
  2. ARIXTRA [Suspect]
     Indication: PRODUCT USED FOR UNKNOWN INDICATION
     Dosage: 7.5MG UNKNOWN
     Route: 065
  3. COUMADIN [Suspect]
     Indication: PRODUCT USED FOR UNKNOWN INDICATION
     Dosage: 1%DS UNKNOWN
     Route: 065
  4. XARELTO [Suspect]
     Indication: THROMBOSIS
     Dosage: 1CAP UNKNOWN
     Route: 065
  5. PAIN MEDICATION [Suspect]
     Indication: PRODUCT USED FOR UNKNOWN INDICATION
     Route: 065
  6. PAIN MEDICATION [Suspect]
     Indication: PRODUCT USED FOR UNKNOWN INDICATION
     Route: 065
  7. CATAPRES [Concomitant]
     Dosage: .5MG TWICE PER DAY
     Route: 048
  8. KLONOPIN [Concomitant]
     Dosage: .5MG PER DAY
     Route: 048
  9. METAMUCIL [Concomitant]
     Dosage: 1000MG TWICE PER DAY
     Route: 048
  10. MUCINEX [Concomitant]
     Dosage: 600MG TWICE PER DAY
     Route: 048
  11. NEURONTIN [Concomitant]
     Dosage: 100MG TWICE PER DAY
     Route: 048
  12. PHENOBARBITAL [Concomitant]
     Dosage: 15MG TWICE PER DAY
     Route: 048
  13. VITAMIN C + BIOFLAVONOIDS [Concomitant]
     Dosage: 1000MG PER DAY
  14. HEPARIN [Concomitant]
  15. FENTANYL [Concomitant]

REACTIONS (12)
  - Investigation [Unknown]
  - Adverse drug reaction [Unknown]
  - Drug intolerance [Unknown]
  - Thrombosis [Unknown]
  - Nonspecific reaction [Unknown]
  - Drug dose omission [Unknown]
  - Hysterectomy [Not Recovered/Not Resolved]
  - Post procedural complication [Unknown]
  - Arrhythmia [Unknown]
  - Chest pain [Unknown]
  - Off label use [Unknown]
  - Drug interaction [Unknown]
